FAERS Safety Report 5099746-4 (Version None)
Quarter: 2006Q3

REPORT INFORMATION
  Report Type: 
  Country: None (occurrence: None)
  Receive Date: 20060908
  Receipt Date: 20060831
  Transmission Date: 20061208
  Serious: Yes (Hospitalization)
  Sender: FDA-Public Use
  Company Number: JP-ROCHE-461669

PATIENT
  Age: 31 Year
  Sex: Female

DRUGS (10)
  1. RIVOTRIL [Suspect]
     Indication: DRUG USE FOR UNKNOWN INDICATION
     Route: 048
  2. LEXOTAN [Suspect]
     Indication: DRUG USE FOR UNKNOWN INDICATION
     Route: 048
  3. AMOBAN [Suspect]
     Indication: DRUG USE FOR UNKNOWN INDICATION
     Route: 048
  4. VALPROATE SODIUM [Suspect]
     Indication: DRUG USE FOR UNKNOWN INDICATION
     Route: 048
  5. PSYCHOTROPICS [Suspect]
     Indication: DRUG USE FOR UNKNOWN INDICATION
     Route: 048
  6. PROMETHAZINE HCL [Suspect]
     Indication: DRUG USE FOR UNKNOWN INDICATION
     Route: 048
  7. PHENOBARBITAL TAB [Suspect]
     Indication: DRUG USE FOR UNKNOWN INDICATION
     Route: 048
  8. PEROSPIRONE HYDROCHLORIDE HYDRATE [Suspect]
     Indication: DRUG USE FOR UNKNOWN INDICATION
     Route: 048
  9. ALPRAZOLAM [Suspect]
     Indication: DRUG USE FOR UNKNOWN INDICATION
     Route: 048
  10. ETIZOLAM [Suspect]
     Indication: DRUG USE FOR UNKNOWN INDICATION
     Route: 048

REACTIONS (11)
  - ALANINE AMINOTRANSFERASE INCREASED [None]
  - ASPARTATE AMINOTRANSFERASE INCREASED [None]
  - BLOOD LACTATE DEHYDROGENASE INCREASED [None]
  - DEPRESSED LEVEL OF CONSCIOUSNESS [None]
  - HEPATIC FUNCTION ABNORMAL [None]
  - MULTIPLE DRUG OVERDOSE INTENTIONAL [None]
  - NEUROLEPTIC MALIGNANT SYNDROME [None]
  - OVERDOSE [None]
  - PNEUMONIA ASPIRATION [None]
  - PYREXIA [None]
  - RHABDOMYOLYSIS [None]
